FAERS Safety Report 4473939-9 (Version None)
Quarter: 2004Q4

REPORT INFORMATION
  Report Type: 
  Country: None (occurrence: None)
  Receive Date: 20041013
  Receipt Date: 20040928
  Transmission Date: 20050328
  Serious: Yes (Hospitalization, Other)
  Sender: FDA-Public Use
  Company Number: 2004S1002504

PATIENT
  Age: 37 Year
  Sex: Male
  Weight: 95.2554 kg

DRUGS (11)
  1. ZONEGRAN [Suspect]
     Indication: CONVULSION
     Dosage: SEE IMAGE
     Dates: start: 20010101
  2. PEHNYTEK CAPSYLES 300MG MYLAN BERTEK (A SUBSIDIARY OF MYLAN LABORATORI [Suspect]
     Indication: CONVULSION
     Dosage: 300 MG BID THEN 300MG QD
     Route: 048
     Dates: start: 20020201
  3. PHENYTEK [Suspect]
     Indication: CONVULSION
     Dosage: SEE IMAGE
     Route: 048
  4. ZYPREXA [Suspect]
     Indication: ABNORMAL BEHAVIOUR
     Dosage: ORAL
     Route: 048
     Dates: start: 20040712
  5. ESCITALOPRAM OXALATE [Concomitant]
  6. LORAZEPAM [Concomitant]
  7. DIAZEPAM [Concomitant]
  8. DONEPEZIL HCL [Concomitant]
  9. CLORAZEPATE DIPOTASSIUM [Concomitant]
  10. CELECOXIB [Concomitant]
  11. SIMVASTATIN [Concomitant]

REACTIONS (6)
  - ABNORMAL BEHAVIOUR [None]
  - ANTICONVULSANT DRUG LEVEL BELOW THERAPEUTIC [None]
  - BLOOD CHOLESTEROL INCREASED [None]
  - CONDITION AGGRAVATED [None]
  - DEMENTIA ALZHEIMER'S TYPE [None]
  - GRAND MAL CONVULSION [None]
